FAERS Safety Report 6165742-9 (Version None)
Quarter: 2009Q2

REPORT INFORMATION
  Report Type: 
  Country: None (occurrence: None)
  Receive Date: 20090422
  Receipt Date: 20090420
  Transmission Date: 20091009
  Serious: Yes (Hospitalization, Disabling)
  Sender: FDA-Public Use
  Company Number: SP02196

PATIENT
  Age: 65 Year
  Sex: Female

DRUGS (2)
  1. VISICOL [Suspect]
     Indication: COLONOSCOPY
     Dosage: (50 GM), ORAL
     Route: 048
     Dates: start: 20081127, end: 20081127
  2. OLMESARTAN MEDOXOMIL [Concomitant]

REACTIONS (6)
  - CARDIOMEGALY [None]
  - EATING DISORDER [None]
  - KIDNEY ENLARGEMENT [None]
  - NEPHROPATHY [None]
  - PLEURAL EFFUSION [None]
  - RENAL FAILURE CHRONIC [None]
